FAERS Safety Report 10503611 (Version 2)
Quarter: 2014Q4

REPORT INFORMATION
  Report Type: Report from Study
  Country: US (occurrence: US)
  Receive Date: 20141008
  Receipt Date: 20141023
  Transmission Date: 20150528
  Serious: Yes (Hospitalization, Other)
  Sender: FDA-Public Use
  Company Number: US-AMGEN-USASL2014076077

PATIENT
  Age: 65 Year
  Sex: Female
  Weight: 102.4 kg

DRUGS (15)
  1. EFEXOR XL [Concomitant]
     Active Substance: VENLAFAXINE HYDROCHLORIDE
     Dosage: 3 CAPSULES(225 MG TOTAL) DAILY
     Route: 048
  2. MAGNESIUM [Concomitant]
     Active Substance: MAGNESIUM
     Dosage: 4 TABLETS PO QID
     Route: 048
  3. CALCIUM + VITAMIN D                /01606701/ [Concomitant]
     Dosage: UNK
  4. AROMASIN [Concomitant]
     Active Substance: EXEMESTANE
     Dosage: 25 MG, UNK, TAKE 1 TABLET BY MOUTH DAILY
     Route: 048
  5. ENBREL [Suspect]
     Active Substance: ETANERCEPT
     Indication: PSORIASIS
     Dosage: 50 MG, QWK
     Route: 058
     Dates: start: 201405
  6. ANTIVERT                           /00072802/ [Concomitant]
     Dosage: 50 MG, EVERY 4 TO 6 HOURS AS NEEDED
     Route: 048
  7. TEMOVATE [Concomitant]
     Active Substance: CLOBETASOL PROPIONATE
     Dosage: 0.05 %, BID, 1 APPLICATION TOP BID AS A SCALP SOLUTION
  8. KENALOG [Concomitant]
     Active Substance: TRIAMCINOLONE ACETONIDE
     Dosage: 0.1 %, BID, 1 APPLICATION TOP BID; APPLY THIN LAYER TO AFFECTED AREA
     Route: 061
  9. NEURONTIN [Concomitant]
     Active Substance: GABAPENTIN
     Dosage: 400 MG, TID
     Route: 048
  10. PRILOSEC [Concomitant]
     Active Substance: OMEPRAZOLE MAGNESIUM
     Dosage: 20 MG, UNK, TAKE 1 CAPSULE BY MOUTH DAILY
     Route: 048
  11. TRILEPTAL [Concomitant]
     Active Substance: OXCARBAZEPINE
     Dosage: 150 MG, UNK, 2 TABLETS DAILY
     Route: 048
  12. DIOVAN HCT [Concomitant]
     Active Substance: HYDROCHLOROTHIAZIDE\VALSARTAN
     Dosage: UNK MG, UNK, 160-25 MG PER TABLET, TAKE 1 TABLET DAILY
     Route: 048
  13. AMBIEN [Concomitant]
     Active Substance: ZOLPIDEM TARTRATE
     Dosage: 10 MG, UNK, 10 MG NIGHTLY AS NEEDED
     Route: 048
  14. NAPROSYN [Concomitant]
     Active Substance: NAPROXEN
     Dosage: 500 MG, BID
     Route: 048
  15. LEVOTHYROXINE [Concomitant]
     Active Substance: LEVOTHYROXINE
     Dosage: 75 MUG, UNK, TAKE ONE TABLET BY MOUTH DAILY
     Route: 048

REACTIONS (1)
  - Osteoarthritis [Unknown]
